FAERS Safety Report 12601826 (Version 1)
Quarter: 2016Q3

REPORT INFORMATION
  Report Type: Report from Study
  Country: BR (occurrence: BR)
  Receive Date: 20160728
  Receipt Date: 20160728
  Transmission Date: 20161109
  Serious: Yes (Other)
  Sender: FDA-Public Use
  Company Number: BR-JNJFOC-20160722358

PATIENT
  Sex: Female

DRUGS (3)
  1. CALCORT [Concomitant]
     Active Substance: DEFLAZACORT
     Route: 065
  2. SIMPONI [Suspect]
     Active Substance: GOLIMUMAB
     Indication: RHEUMATOID ARTHRITIS
     Route: 058
     Dates: start: 20141023
  3. PROFENID [Concomitant]
     Active Substance: KETOPROFEN
     Route: 065

REACTIONS (3)
  - Localised infection [Unknown]
  - Contusion [Unknown]
  - Peripheral swelling [Unknown]
